FAERS Safety Report 7916065 (Version 3)
Quarter: 2013Q3

REPORT INFORMATION
  Report Type: Spontaneous
  Country: CA (occurrence: CA)
  Receive Date: 20110427
  Receipt Date: 20130918
  Transmission Date: 20140515
  Serious: Yes (Other)
  Sender: FDA-Public Use
  Company Number: CA-BAYER-2011-032423

PATIENT
  Age: 39 Year
  Sex: Female
  Weight: 102 kg

DRUGS (1)
  1. MIRENA [Suspect]
     Indication: PRODUCT USED FOR UNKNOWN INDICATION
     Dosage: 20 MCG/24HR, CONT
     Route: 015
     Dates: start: 20110204, end: 20110413

REACTIONS (5)
  - Uterine perforation [Recovered/Resolved]
  - Device dislocation [Recovered/Resolved]
  - Gastric perforation [None]
  - Device dislocation [Recovered/Resolved]
  - Procedural pain [Recovered/Resolved]
